FAERS Safety Report 18444283 (Version 2)
Quarter: 2020Q4

REPORT INFORMATION
  Report Type: Spontaneous
  Country: AU (occurrence: AU)
  Receive Date: 20201030
  Receipt Date: 20201111
  Transmission Date: 20210114
  Serious: Yes (Hospitalization)
  Sender: FDA-Public Use
  Company Number: NVSC2020AU286595

PATIENT
  Age: 67 Year
  Sex: Male

DRUGS (2)
  1. GILENYA [Suspect]
     Active Substance: FINGOLIMOD HYDROCHLORIDE
     Dosage: UNK (INITIAL)
     Route: 048
     Dates: start: 20201016
  2. GILENYA [Suspect]
     Active Substance: FINGOLIMOD HYDROCHLORIDE
     Indication: MULTIPLE SCLEROSIS
     Dosage: 0.5 MG
     Route: 065

REACTIONS (3)
  - Heart rate decreased [Recovered/Resolved]
  - Atrioventricular block first degree [Recovered/Resolved]
  - Arrhythmia [Recovered/Resolved]

NARRATIVE: CASE EVENT DATE: 20201016
